FAERS Safety Report 4962307-9 (Version None)
Quarter: 2006Q2

REPORT INFORMATION
  Report Type: 
  Country: None (occurrence: None)
  Receive Date: 20060404
  Receipt Date: 20060323
  Transmission Date: 20061013
  Serious: Yes (Hospitalization)
  Sender: FDA-Public Use
  Company Number: CH-AVENTIS-200613083GDDC

PATIENT
  Age: 84 Year
  Sex: Male

DRUGS (4)
  1. AMARYL [Suspect]
     Indication: DIABETES MELLITUS NON-INSULIN-DEPENDENT
     Route: 048
  2. GLEEVEC [Suspect]
     Indication: NEOPLASM MALIGNANT
     Route: 048
  3. SELIPRAN [Concomitant]
     Indication: HYPERCHOLESTEROLAEMIA
     Route: 048
  4. APROVEL [Concomitant]
     Indication: HYPERTENSION
     Route: 048

REACTIONS (7)
  - ANOREXIA [None]
  - CONFUSIONAL STATE [None]
  - DIARRHOEA [None]
  - DRUG DOSE OMISSION [None]
  - FALL [None]
  - HYPOGLYCAEMIA [None]
  - SYNCOPE [None]
